APPROVED DRUG PRODUCT: LEUCOVORIN CALCIUM
Active Ingredient: LEUCOVORIN CALCIUM
Strength: EQ 10MG BASE
Dosage Form/Route: TABLET;ORAL
Application: A213929 | Product #002 | TE Code: AB
Applicant: LEADING PHARMA LLC
Approved: Oct 22, 2020 | RLD: No | RS: No | Type: RX